FAERS Safety Report 22333358 (Version 1)
Quarter: 2023Q2

REPORT INFORMATION
  Report Type: Spontaneous
  Country: SE (occurrence: SE)
  Receive Date: 20230517
  Receipt Date: 20230517
  Transmission Date: 20230721
  Serious: Yes (Life-Threatening, Hospitalization)
  Sender: FDA-Public Use
  Company Number: None

PATIENT
  Age: 78 Year
  Sex: Female

DRUGS (1)
  1. EDOXABAN TOSYLATE [Suspect]
     Active Substance: EDOXABAN TOSYLATE
     Indication: Atrial fibrillation
     Dosage: 60 MG, QD
     Route: 048
     Dates: start: 20180815, end: 20230507

REACTIONS (3)
  - Cerebellar stroke [Recovered/Resolved with Sequelae]
  - Atrial thrombosis [Recovered/Resolved with Sequelae]
  - Drug ineffective [Recovered/Resolved with Sequelae]

NARRATIVE: CASE EVENT DATE: 20230424
